FAERS Safety Report 6340595-4 (Version None)
Quarter: 2009Q3

REPORT INFORMATION
  Report Type: 
  Country: None (occurrence: None)
  Receive Date: 20090902
  Receipt Date: 20090902
  Transmission Date: 20100115
  Serious: Yes (Other)
  Sender: FDA-Public Use
  Company Number: None

PATIENT
  Sex: Male

DRUGS (7)
  1. CIALIS [Suspect]
     Indication: AGITATION
     Dosage: 1 EVERY 36 HRS AS NEEDED  (ONE DOSE ONLY)
     Dates: start: 20090813
  2. CIALIS [Suspect]
     Indication: SEXUAL INHIBITION
     Dosage: 1 EVERY 36 HRS AS NEEDED  (ONE DOSE ONLY)
     Dates: start: 20090813
  3. CIALIS [Suspect]
     Indication: TESTICULAR FAILURE
     Dosage: 1 EVERY 36 HRS AS NEEDED  (ONE DOSE ONLY)
     Dates: start: 20090813
  4. DIGOXIN [Concomitant]
  5. OMEPRAZOLE [Concomitant]
  6. LIPITOR [Concomitant]
  7. METOPROLOL SUCCINATE [Concomitant]

REACTIONS (2)
  - DIZZINESS [None]
  - HEART RATE IRREGULAR [None]
